FAERS Safety Report 6841945-2 (Version None)
Quarter: 2010Q3

REPORT INFORMATION
  Report Type: 
  Country: None (occurrence: None)
  Receive Date: 20100714
  Receipt Date: 20071119
  Transmission Date: 20110219
  Serious: Yes (Other)
  Sender: FDA-Public Use
  Company Number: US-PFIZER INC-2007059931

PATIENT
  Sex: Male
  Weight: 108.9 kg

DRUGS (4)
  1. CHANTIX [Suspect]
     Indication: SMOKING CESSATION THERAPY
     Dates: start: 20070101, end: 20070101
  2. LEXAPRO [Concomitant]
     Dates: start: 20070319
  3. ALL OTHER THERAPEUTIC PRODUCTS [Concomitant]
  4. VALSARTAN [Concomitant]
     Dates: start: 20060301

REACTIONS (5)
  - ANXIETY [None]
  - DRUG WITHDRAWAL SYNDROME [None]
  - EMOTIONAL DISORDER [None]
  - HERPES ZOSTER [None]
  - WEIGHT INCREASED [None]
